FAERS Safety Report 6131368-6 (Version None)
Quarter: 2009Q1

REPORT INFORMATION
  Report Type: 
  Country: None (occurrence: None)
  Receive Date: 20090325
  Receipt Date: 20080418
  Transmission Date: 20090719
  Serious: No
  Sender: FDA-Public Use
  Company Number: US-BRISTOL-MYERS SQUIBB COMPANY-14156780

PATIENT
  Age: 81 Year
  Sex: Female

DRUGS (5)
  1. ERBITUX [Suspect]
     Dates: start: 20080418, end: 20080418
  2. LIPITOR [Concomitant]
  3. DYAZIDE [Concomitant]
  4. DARVOCET-N 100 [Concomitant]
  5. XELODA [Concomitant]

REACTIONS (1)
  - INFUSION SITE EXTRAVASATION [None]
